FAERS Safety Report 4770838-X (Version None)
Quarter: 2005Q3

REPORT INFORMATION
  Report Type: 
  Country: None (occurrence: None)
  Receive Date: 20050915
  Receipt Date: 20050908
  Transmission Date: 20060218
  Serious: Yes (Hospitalization)
  Sender: FDA-Public Use
  Company Number: FR-GLAXOSMITHKLINE-B0393134A

PATIENT
  Age: 46 Year
  Sex: Male
  Weight: 46 kg

DRUGS (10)
  1. HYCAMTIN [Suspect]
     Indication: SMALL CELL LUNG CANCER METASTATIC
     Route: 042
     Dates: start: 20050502, end: 20050627
  2. KETOPROFEN [Suspect]
     Indication: METASTASES TO BONE
     Route: 048
  3. OXAZEPAM [Suspect]
     Route: 048
     Dates: start: 20050101
  4. DURAGESIC-100 [Suspect]
     Indication: METASTASES TO BONE
     Route: 065
  5. ZOMETA [Suspect]
     Indication: METASTASES TO BONE
     Dosage: 4MG CYCLIC
     Route: 042
     Dates: start: 20050321, end: 20050530
  6. NEORECORMON [Suspect]
     Route: 058
  7. ETOPOSIDE [Suspect]
     Indication: SMALL CELL LUNG CANCER METASTATIC
     Route: 065
     Dates: start: 20050501, end: 20050503
  8. CISPLATIN [Suspect]
     Indication: SMALL CELL LUNG CANCER METASTATIC
     Route: 065
     Dates: start: 20050501, end: 20050503
  9. SKENAN [Concomitant]
     Route: 065
  10. OXYNORM [Concomitant]
     Route: 065

REACTIONS (4)
  - ASEPTIC NECROSIS BONE [None]
  - MUCOSAL ULCERATION [None]
  - ORAL DISCOMFORT [None]
  - PAIN IN JAW [None]
